FAERS Safety Report 20375535 (Version 1)
Quarter: 2022Q1

REPORT INFORMATION
  Report Type: Spontaneous
  Country: US (occurrence: US)
  Receive Date: 20220125
  Receipt Date: 20220125
  Transmission Date: 20220423
  Serious: Yes (Hospitalization, Other)
  Sender: FDA-Public Use
  Company Number: US-PFIZER INC-202200070335

PATIENT
  Sex: Male

DRUGS (1)
  1. SULFASALAZINE [Suspect]
     Active Substance: SULFASALAZINE
     Indication: Colitis
     Dosage: 8 TABLETS, TWICE DAILY

REACTIONS (7)
  - Illness [Unknown]
  - Urinary retention [Unknown]
  - Bladder dysfunction [Unknown]
  - Nausea [Recovering/Resolving]
  - Asthenia [Unknown]
  - Product prescribing error [Unknown]
  - Off label use [Unknown]
